FAERS Safety Report 6564866-1 (Version None)
Quarter: 2010Q1

REPORT INFORMATION
  Report Type: 
  Country: None (occurrence: None)
  Receive Date: 20100201
  Receipt Date: 20100121
  Transmission Date: 20100710
  Serious: Yes (Other)
  Sender: FDA-Public Use
  Company Number: US-JNJFOC-20091103018

PATIENT
  Sex: Female
  Weight: 96.16 kg

DRUGS (12)
  1. REMICADE [Suspect]
     Indication: COLITIS ULCERATIVE
     Route: 042
  2. REMICADE [Suspect]
     Route: 042
  3. REMICADE [Suspect]
     Route: 042
  4. REMICADE [Suspect]
     Route: 042
  5. REMICADE [Suspect]
     Route: 042
  6. REMICADE [Suspect]
     Route: 042
  7. LIALDA [Concomitant]
  8. MERCAPTOPURINE [Concomitant]
  9. LEXAPRO [Concomitant]
  10. LASIX [Concomitant]
  11. VITAMIN B-12 [Concomitant]
  12. CALCIUM [Concomitant]

REACTIONS (9)
  - ANTINUCLEAR ANTIBODY POSITIVE [None]
  - ARTHRALGIA [None]
  - CHILLS [None]
  - DIARRHOEA [None]
  - DYSPEPSIA [None]
  - HEPATIC ENZYME INCREASED [None]
  - NIGHT SWEATS [None]
  - PYREXIA [None]
  - URINARY TRACT INFECTION [None]
